FAERS Safety Report 16014540 (Version 1)
Quarter: 2019Q1

REPORT INFORMATION
  Report Type: Spontaneous
  Country: GB (occurrence: GB)
  Receive Date: 20190227
  Receipt Date: 20190227
  Transmission Date: 20190418
  Serious: Yes (Life-Threatening)
  Sender: FDA-Public Use
  Company Number: GB-TEVA-2019-GB-1015406

PATIENT
  Age: 66 Year
  Sex: Female
  Weight: 52.8 kg

DRUGS (12)
  1. CASSIA [Concomitant]
  2. MIRTAZAPINE. [Concomitant]
     Active Substance: MIRTAZAPINE
  3. TOPIRAMATE. [Suspect]
     Active Substance: TOPIRAMATE
     Indication: DEMENTIA ALZHEIMER^S TYPE
     Dosage: 25 MILLIGRAM DAILY;
     Route: 048
     Dates: start: 20190104, end: 20190107
  4. TOPIRAMATE. [Suspect]
     Active Substance: TOPIRAMATE
     Dosage: 25 MILLIGRAM DAILY;
     Route: 048
     Dates: start: 20191221
  5. CITALOPRAM [Concomitant]
     Active Substance: CITALOPRAM HYDROBROMIDE
  6. LAMOTRIGINE. [Concomitant]
     Active Substance: LAMOTRIGINE
  7. PROCYCLIDINE [Concomitant]
     Active Substance: PROCYCLIDINE
     Dosage: ORAL, INTRAMUSCULAR, AS NEEDED.
  8. BUTRANS [Concomitant]
     Active Substance: BUPRENORPHINE
     Dosage: 5MCG/HOUR
  9. SODIUM VALPROATE [Suspect]
     Active Substance: VALPROATE SODIUM
     Indication: MYOCLONIC EPILEPSY
     Dosage: 200MG TWICE DAILY, HIGHEST DOSE 400MG TWICE DAILY, WITHDRAWN FROM 300MG TWICE DAILY OVER 2 DAYS.
     Route: 048
     Dates: start: 20181101, end: 20190124
  10. DONEPEZIL. [Concomitant]
     Active Substance: DONEPEZIL
  11. CLONAZEPAM. [Concomitant]
     Active Substance: CLONAZEPAM
     Dosage: 1000 MICROGRAM DAILY;
  12. TOPIRAMATE. [Suspect]
     Active Substance: TOPIRAMATE
     Dosage: 50 MILLIGRAM DAILY;
     Route: 048
     Dates: end: 20190103

REACTIONS (4)
  - Encephalopathy [Recovering/Resolving]
  - Hypertonia [Unknown]
  - Epilepsy [Unknown]
  - Unresponsive to stimuli [Unknown]

NARRATIVE: CASE EVENT DATE: 20181231
